FAERS Safety Report 10390491 (Version 2)
Quarter: 2014Q3

REPORT INFORMATION
  Report Type: Report from Study
  Country: US (occurrence: US)
  Receive Date: 20140818
  Receipt Date: 20140818
  Transmission Date: 20150326
  Serious: Yes (Hospitalization, Other)
  Sender: FDA-Public Use
  Company Number: US-BAYER-2013-144844

PATIENT
  Age: 70 Year
  Sex: Female

DRUGS (2)
  1. NEXAVAR [Suspect]
     Active Substance: SORAFENIB
     Indication: RENAL CANCER
     Dosage: 400 MG, BID
     Route: 048
     Dates: start: 20061102
  2. NEXAVAR [Suspect]
     Active Substance: SORAFENIB
     Indication: RENAL CANCER
     Dosage: DAILY DOSE 800 MG. DOSE REGIMEN: 4X200MG
     Route: 048
     Dates: start: 20120926

REACTIONS (4)
  - Pulmonary embolism [Unknown]
  - Dyspnoea [Unknown]
  - Renal cancer [None]
  - Deep vein thrombosis [Unknown]
